FAERS Safety Report 13952618 (Version 1)
Quarter: 2017Q3

REPORT INFORMATION
  Report Type: Spontaneous
  Country: US (occurrence: US)
  Receive Date: 20170911
  Receipt Date: 20170911
  Transmission Date: 20171128
  Serious: No
  Sender: FDA-Public Use
  Company Number: US-LUPIN PHARMACEUTICALS INC.-2017-04742

PATIENT
  Age: 17 Year
  Sex: Female

DRUGS (1)
  1. AZITHROMYCIN TABLETS USP, 250 MG [Suspect]
     Active Substance: AZITHROMYCIN ANHYDROUS
     Indication: PRODUCT USED FOR UNKNOWN INDICATION
     Dosage: 4 DF, SINGLE
     Route: 048
     Dates: start: 20170731, end: 20170731

REACTIONS (2)
  - No adverse event [Unknown]
  - Accidental exposure to product packaging [Recovered/Resolved]

NARRATIVE: CASE EVENT DATE: 20170731
